FAERS Safety Report 23039658 (Version 2)
Quarter: 2023Q4

REPORT INFORMATION
  Report Type: Spontaneous
  Country: JP (occurrence: JP)
  Receive Date: 20231006
  Receipt Date: 20231212
  Transmission Date: 20240110
  Serious: Yes (Hospitalization)
  Sender: FDA-Public Use
  Company Number: JP-ELI_LILLY_AND_COMPANY-JP202309003970

PATIENT
  Age: 65 Year
  Sex: Male
  Weight: 108 kg

DRUGS (7)
  1. MOUNJARO [Suspect]
     Active Substance: TIRZEPATIDE
     Indication: Diabetes mellitus
     Dosage: 2.5 MG
     Route: 058
     Dates: start: 2023
  2. MOUNJARO [Suspect]
     Active Substance: TIRZEPATIDE
     Dosage: 5 MG
     Route: 058
     Dates: start: 20230718, end: 20230829
  3. MOUNJARO [Suspect]
     Active Substance: TIRZEPATIDE
     Dosage: 5 MG
     Route: 058
     Dates: start: 202310, end: 202311
  4. IPRAGLIFLOZIN L-PROLINE [Suspect]
     Active Substance: IPRAGLIFLOZIN L-PROLINE
     Indication: Diabetes mellitus
     Dosage: UNK
     Route: 065
     Dates: end: 202309
  5. IPRAGLIFLOZIN L-PROLINE [Suspect]
     Active Substance: IPRAGLIFLOZIN L-PROLINE
     Dosage: UNK
     Route: 065
  6. LYRICA [Concomitant]
     Active Substance: PREGABALIN
  7. DISULFIRAM [Concomitant]
     Active Substance: DISULFIRAM
     Route: 048

REACTIONS (2)
  - COVID-19 [Unknown]
  - Ketoacidosis [Recovered/Resolved]

NARRATIVE: CASE EVENT DATE: 20231107
